FAERS Safety Report 19265357 (Version 4)
Quarter: 2021Q4

REPORT INFORMATION
  Report Type: Report from Study
  Country: US (occurrence: US)
  Receive Date: 20210517
  Receipt Date: 20211126
  Transmission Date: 20220303
  Serious: Yes (Disabling)
  Sender: FDA-Public Use
  Company Number: NVSC2021US101513

PATIENT
  Sex: Female

DRUGS (2)
  1. ENTRESTO [Suspect]
     Active Substance: SACUBITRIL\VALSARTAN
     Indication: Product used for unknown indication
     Dosage: 100 MG, BID (49/51 MG)
     Route: 048
  2. COREG [Suspect]
     Active Substance: CARVEDILOL
     Indication: Blood pressure abnormal
     Dosage: UNK
     Route: 065

REACTIONS (7)
  - Musculoskeletal discomfort [Unknown]
  - Weight increased [Unknown]
  - Exercise tolerance decreased [Unknown]
  - Fluid retention [Unknown]
  - Throat clearing [Unknown]
  - Hypotension [Unknown]
  - Product dose omission in error [Unknown]
